FAERS Safety Report 24936608 (Version 1)
Quarter: 2025Q1

REPORT INFORMATION
  Report Type: Spontaneous
  Country: IN (occurrence: IN)
  Receive Date: 20250206
  Receipt Date: 20250206
  Transmission Date: 20250408
  Serious: Yes (Other)
  Sender: AZURITY PHARMACEUTICALS
  Company Number: IN-AZURITY PHARMACEUTICALS, INC.-AZR202501-000444

PATIENT
  Age: 5 Year
  Sex: Female

DRUGS (5)
  1. METHOTREXATE [Suspect]
     Active Substance: METHOTREXATE
     Indication: B-cell type acute leukaemia
     Route: 065
  2. PREDNISOLONE [Suspect]
     Active Substance: PREDNISOLONE
     Indication: B-cell type acute leukaemia
     Route: 065
  3. VINCRISTINE [Suspect]
     Active Substance: VINCRISTINE
     Indication: B-cell type acute leukaemia
     Route: 065
  4. DAUNORUBICIN [Suspect]
     Active Substance: DAUNORUBICIN
     Indication: B-cell type acute leukaemia
     Route: 065
  5. ASPARAGINASE [Suspect]
     Active Substance: ASPARAGINASE
     Indication: B-cell type acute leukaemia
     Route: 065

REACTIONS (6)
  - Nephrotic syndrome [Unknown]
  - Renal infarct [Unknown]
  - Renal vascular thrombosis [Unknown]
  - Hypoalbuminaemia [Unknown]
  - Urosepsis [Recovered/Resolved]
  - Thrombocytopenia [Unknown]
